FAERS Safety Report 23139052 (Version 1)
Quarter: 2023Q4

REPORT INFORMATION
  Report Type: Spontaneous
  Country: US (occurrence: None)
  Receive Date: 20231102
  Receipt Date: 20231102
  Transmission Date: 20240109
  Serious: No
  Sender: FDA-Public Use
  Company Number: None

PATIENT
  Sex: Female
  Weight: 83.1 kg

DRUGS (1)
  1. CARBOPLATIN [Suspect]
     Active Substance: CARBOPLATIN
     Dates: end: 20230928

REACTIONS (5)
  - Chills [None]
  - Cough [None]
  - Malaise [None]
  - COVID-19 [None]
  - Platelet count decreased [None]

NARRATIVE: CASE EVENT DATE: 20231012
